FAERS Safety Report 7095144-2 (Version None)
Quarter: 2010Q4

REPORT INFORMATION
  Report Type: 
  Country: None (occurrence: None)
  Receive Date: 20101111
  Receipt Date: 20101104
  Transmission Date: 20110411
  Serious: No
  Sender: FDA-Public Use
  Company Number: 2010BI003341

PATIENT
  Sex: Female

DRUGS (1)
  1. TYSABRI [Suspect]
     Indication: MULTIPLE SCLEROSIS
     Route: 042
     Dates: start: 20070103, end: 20080722

REACTIONS (6)
  - BLINDNESS UNILATERAL [None]
  - GLAUCOMA [None]
  - OPTIC NERVE DISORDER [None]
  - READING DISORDER [None]
  - VISION BLURRED [None]
  - VISUAL IMPAIRMENT [None]
